FAERS Safety Report 12051272 (Version 1)
Quarter: 2016Q1

REPORT INFORMATION
  Report Type: Spontaneous
  Country: TR (occurrence: TR)
  Receive Date: 20160209
  Receipt Date: 20160209
  Transmission Date: 20160526
  Serious: Yes (Other)
  Sender: FDA-Public Use
  Company Number: PHHY2015TR134013

PATIENT
  Age: 38 Year
  Sex: Female

DRUGS (2)
  1. TYKERB [Suspect]
     Active Substance: LAPATINIB DITOSYLATE
     Indication: BREAST CANCER FEMALE
     Dosage: UNK
     Route: 065
  2. CAPECITABINE. [Suspect]
     Active Substance: CAPECITABINE
     Indication: BREAST CANCER FEMALE
     Route: 065

REACTIONS (6)
  - Nasal septum perforation [Unknown]
  - Rhinorrhoea [Unknown]
  - Nasal congestion [Unknown]
  - Haemorrhage [Unknown]
  - Pain [Unknown]
  - Epistaxis [Unknown]
